FAERS Safety Report 18252808 (Version 1)
Quarter: 2020Q3

REPORT INFORMATION
  Report Type: Spontaneous
  Country: US (occurrence: US)
  Receive Date: 20200910
  Receipt Date: 20200910
  Transmission Date: 20201103
  Serious: Yes (Hospitalization)
  Sender: FDA-Public Use
  Company Number: US-BAYER-2020-176608

PATIENT
  Age: 34 Year
  Sex: Female

DRUGS (1)
  1. GIANVI [Suspect]
     Active Substance: DROSPIRENONE\ETHINYL ESTRADIOL
     Dosage: UNK
     Route: 048
     Dates: start: 2009, end: 20191231

REACTIONS (5)
  - Right ventricular dysfunction [Recovered/Resolved]
  - Swelling [Not Recovered/Not Resolved]
  - Pulmonary embolism [Recovered/Resolved]
  - Cholelithiasis [None]
  - Dizziness [Not Recovered/Not Resolved]

NARRATIVE: CASE EVENT DATE: 20191231
